FAERS Safety Report 19706509 (Version 1)
Quarter: 2021Q3

REPORT INFORMATION
  Report Type: Spontaneous
  Country: US (occurrence: US)
  Receive Date: 20210816
  Receipt Date: 20210816
  Transmission Date: 20211014
  Serious: No
  Sender: FDA-Public Use
  Company Number: None

PATIENT
  Age: 54 Year
  Sex: Female

DRUGS (1)
  1. HYDROXYCHLOROQUINE (HYDROXYCHLOROQUINE SO4 200MG TAB) [Suspect]
     Active Substance: HYDROXYCHLOROQUINE SULFATE
     Indication: ARTHROPATHY
     Route: 048
     Dates: start: 20210321, end: 20210505

REACTIONS (3)
  - Headache [None]
  - Rash [None]
  - Abdominal discomfort [None]

NARRATIVE: CASE EVENT DATE: 20210321
